FAERS Safety Report 19112088 (Version 1)
Quarter: 2021Q2

REPORT INFORMATION
  Report Type: Spontaneous
  Country: US (occurrence: US)
  Receive Date: 20210409
  Receipt Date: 20210409
  Transmission Date: 20210717
  Serious: No
  Sender: FDA-Public Use
  Company Number: None

PATIENT
  Age: 67 Year
  Sex: Male

DRUGS (1)
  1. EMPAGLIFLOZIN (EMPAGLIFLOZIN 25MG TAB) [Suspect]
     Active Substance: EMPAGLIFLOZIN
     Indication: DIABETES MELLITUS
     Route: 048
     Dates: start: 20201104, end: 20201108

REACTIONS (5)
  - Sepsis [None]
  - Diabetic ketoacidosis [None]
  - Metabolic acidosis [None]
  - Anion gap increased [None]
  - Renal tubular acidosis [None]

NARRATIVE: CASE EVENT DATE: 20201108
